FAERS Safety Report 17062829 (Version 1)
Quarter: 2019Q4

REPORT INFORMATION
  Report Type: Other
  Country: DE (occurrence: DE)
  Receive Date: 20191122
  Receipt Date: 20191122
  Transmission Date: 20200122
  Serious: Yes (Other)
  Sender: FDA-Public Use
  Company Number: DE-CELLTRION INC.-2019DE026567

PATIENT

DRUGS (44)
  1. RITUXIMAB (UNKNOWN) [Suspect]
     Active Substance: RITUXIMAB
     Dosage: 566 MG, UNK
     Route: 041
     Dates: start: 20190409, end: 20190409
  2. RITUXIMAB (UNKNOWN) [Suspect]
     Active Substance: RITUXIMAB
     Dosage: 566 MG, UNK
     Route: 041
     Dates: start: 20190426, end: 20190426
  3. RITUXIMAB (UNKNOWN) [Suspect]
     Active Substance: RITUXIMAB
     Dosage: 566 MG, UNK
     Route: 041
     Dates: start: 20190614, end: 20190614
  4. PREDNISONE. [Suspect]
     Active Substance: PREDNISONE
     Dosage: 350 MG, UNK
     Route: 048
     Dates: start: 20190511, end: 20190517
  5. DOXORUBICIN [Suspect]
     Active Substance: DOXORUBICIN
     Indication: DIFFUSE LARGE B-CELL LYMPHOMA
     Dosage: 50 MG, UNK
     Route: 041
     Dates: start: 20190125, end: 20190125
  6. DOXORUBICIN [Suspect]
     Active Substance: DOXORUBICIN
     Dosage: 76 MG, UNK
     Route: 041
     Dates: start: 20190510, end: 20190510
  7. VINCRISTINE [Suspect]
     Active Substance: VINCRISTINE
     Dosage: 1 MG, UNK
     Route: 041
     Dates: start: 20190329, end: 20190329
  8. MCP [Concomitant]
     Active Substance: METOCLOPRAMIDE HYDROCHLORIDE
     Indication: PROPHYLAXIS
     Dosage: UNK
     Route: 048
     Dates: start: 20190130
  9. RITUXIMAB (UNKNOWN) [Suspect]
     Active Substance: RITUXIMAB
     Dosage: 566 MG, UNK
     Route: 041
     Dates: start: 20190517, end: 20190517
  10. CYCLOPHOSPHAMIDE. [Suspect]
     Active Substance: CYCLOPHOSPHAMIDE
     Dosage: 1133 MG, UNK
     Route: 041
     Dates: start: 20190418, end: 20190418
  11. DOXORUBICIN [Suspect]
     Active Substance: DOXORUBICIN
     Dosage: 76 MG, UNK
     Route: 041
     Dates: start: 20190215, end: 20190215
  12. DOXORUBICIN [Suspect]
     Active Substance: DOXORUBICIN
     Dosage: 76 MG, UNK
     Route: 041
     Dates: start: 20190308, end: 20190308
  13. VINCRISTINE [Suspect]
     Active Substance: VINCRISTINE
     Indication: DIFFUSE LARGE B-CELL LYMPHOMA
     Dosage: 1 MG, UNK
     Route: 041
     Dates: start: 20190125, end: 20190125
  14. VINCRISTINE [Suspect]
     Active Substance: VINCRISTINE
     Dosage: 1 MG, UNK
     Route: 041
     Dates: start: 20190215, end: 20190215
  15. OMEDOC [Concomitant]
     Indication: PRODUCT USED FOR UNKNOWN INDICATION
     Dosage: UNK
     Route: 048
     Dates: start: 20190130
  16. UROMITEXAN [Concomitant]
     Active Substance: MESNA
     Indication: PRODUCT USED FOR UNKNOWN INDICATION
     Dosage: UNK
     Route: 042
     Dates: start: 20190125, end: 20190510
  17. RITUXIMAB (UNKNOWN) [Suspect]
     Active Substance: RITUXIMAB
     Dosage: 566 MG, UNK
     Route: 041
     Dates: start: 20190226, end: 20190226
  18. PREDNISONE. [Suspect]
     Active Substance: PREDNISONE
     Dosage: 350 MG, UNK
     Route: 048
     Dates: start: 20190419, end: 20190424
  19. CYCLOPHOSPHAMIDE. [Suspect]
     Active Substance: CYCLOPHOSPHAMIDE
     Dosage: 1133 MG, UNK
     Route: 041
     Dates: start: 20190215, end: 20190215
  20. DOXORUBICIN [Suspect]
     Active Substance: DOXORUBICIN
     Dosage: 76 MG, UNK
     Route: 041
     Dates: start: 20190418, end: 20190418
  21. VINCRISTINE [Suspect]
     Active Substance: VINCRISTINE
     Dosage: 1 MG, UNK
     Route: 041
     Dates: start: 20190418, end: 20190418
  22. MAGNESIUM [Concomitant]
     Active Substance: MAGNESIUM
     Indication: PROPHYLAXIS
     Dosage: UNK
     Route: 048
     Dates: start: 20190426
  23. PARACETAMOL [Concomitant]
     Active Substance: ACETAMINOPHEN
     Indication: PROPHYLAXIS
     Dosage: UNK
     Route: 048
     Dates: start: 20190108
  24. ACCOFIL [Concomitant]
     Active Substance: FILGRASTIM
     Indication: PROPHYLAXIS
     Dosage: 30 OT
     Route: 058
     Dates: start: 20190222, end: 20190429
  25. FENISTIL [Concomitant]
     Active Substance: DIMETHINDENE
     Indication: PRODUCT USED FOR UNKNOWN INDICATION
     Dosage: UNK
     Route: 042
     Dates: start: 20190208, end: 20190517
  26. RITUXIMAB (UNKNOWN) [Suspect]
     Active Substance: RITUXIMAB
     Dosage: 566 MG, UNK
     Route: 041
     Dates: start: 20190705
  27. PREDNISONE. [Suspect]
     Active Substance: PREDNISONE
     Dosage: 350 MG, UNK
     Route: 048
     Dates: start: 20190309, end: 20190314
  28. VINCRISTINE [Suspect]
     Active Substance: VINCRISTINE
     Dosage: 1 MG, UNK
     Route: 041
     Dates: start: 20190308, end: 20190308
  29. VINCRISTINE [Suspect]
     Active Substance: VINCRISTINE
     Dosage: 1 MG, UNK
     Route: 041
     Dates: start: 20190510, end: 20190510
  30. KEVATRIL [Concomitant]
     Active Substance: GRANISETRON HYDROCHLORIDE
     Indication: PRODUCT USED FOR UNKNOWN INDICATION
     Dosage: UNK
     Route: 042
     Dates: start: 20190125, end: 20190510
  31. METOCLOPRAMID [METOCLOPRAMIDE] [Concomitant]
     Active Substance: METOCLOPRAMIDE
     Indication: PROPHYLAXIS
     Dosage: UNK
     Route: 048
     Dates: start: 20190130
  32. RITUXIMAB (UNKNOWN) [Suspect]
     Active Substance: RITUXIMAB
     Indication: DIFFUSE LARGE B-CELL LYMPHOMA
     Dosage: 566 MG, UNK
     Route: 041
     Dates: start: 20190208, end: 20190208
  33. CYCLOPHOSPHAMIDE. [Suspect]
     Active Substance: CYCLOPHOSPHAMIDE
     Dosage: 1133 MG, UNK
     Route: 041
     Dates: start: 20190308, end: 20190308
  34. PREDNISOLON [PREDNISOLONE ACETATE] [Concomitant]
     Indication: PROPHYLAXIS
     Dosage: UNK
     Route: 042
     Dates: start: 20190125, end: 20190705
  35. ALLOPURINOL. [Concomitant]
     Active Substance: ALLOPURINOL
     Indication: GENERAL PHYSICAL HEALTH DETERIORATION
     Dosage: UNK
     Route: 048
     Dates: start: 20190108
  36. RITUXIMAB (UNKNOWN) [Suspect]
     Active Substance: RITUXIMAB
     Dosage: 566 MG, UNK
     Route: 041
     Dates: start: 20190319, end: 20190319
  37. PREDNISONE. [Suspect]
     Active Substance: PREDNISONE
     Dosage: 350 MG, UNK
     Route: 048
     Dates: start: 20190216, end: 20190221
  38. ZANTAC [Concomitant]
     Active Substance: RANITIDINE HYDROCHLORIDE
     Indication: PRODUCT USED FOR UNKNOWN INDICATION
     Dosage: UNK
     Route: 042
     Dates: start: 20190208, end: 20190517
  39. PREDNISONE. [Suspect]
     Active Substance: PREDNISONE
     Indication: DIFFUSE LARGE B-CELL LYMPHOMA
     Dosage: 350 MG, UNK
     Route: 048
     Dates: start: 20190126, end: 20190131
  40. CYCLOPHOSPHAMIDE. [Suspect]
     Active Substance: CYCLOPHOSPHAMIDE
     Indication: DIFFUSE LARGE B-CELL LYMPHOMA
     Dosage: 1133 MG, UNK
     Route: 041
     Dates: start: 20190125, end: 20190125
  41. CYCLOPHOSPHAMIDE. [Suspect]
     Active Substance: CYCLOPHOSPHAMIDE
     Dosage: 1133 MG, UNK
     Route: 041
     Dates: start: 20190329, end: 20190329
  42. CYCLOPHOSPHAMIDE. [Suspect]
     Active Substance: CYCLOPHOSPHAMIDE
     Dosage: 1133 MG, UNK
     Route: 041
     Dates: start: 20190510, end: 20190510
  43. DOXORUBICIN [Suspect]
     Active Substance: DOXORUBICIN
     Dosage: 76 MG, UNK
     Route: 041
     Dates: start: 20190329, end: 20190329
  44. ALLOPURINOL. [Concomitant]
     Active Substance: ALLOPURINOL
     Indication: PROPHYLAXIS
     Dosage: UNK
     Route: 048
     Dates: start: 20190315

REACTIONS (23)
  - Skin irritation [Recovered/Resolved]
  - Renal pain [Recovered/Resolved]
  - Oropharyngeal pain [Recovered/Resolved]
  - Cough [Recovered/Resolved]
  - Anosmia [Not Recovered/Not Resolved]
  - Back pain [Recovered/Resolved]
  - Asthenia [Unknown]
  - Vertigo [Recovered/Resolved]
  - Hypersensitivity [Recovered/Resolved]
  - Nausea [Recovered/Resolved]
  - Arthralgia [Unknown]
  - Nausea [Recovered/Resolved]
  - Fatigue [Recovered/Resolved]
  - Back pain [Recovered/Resolved]
  - Sciatica [Recovered/Resolved]
  - Nail injury [Unknown]
  - Vomiting [Recovered/Resolved]
  - Decreased appetite [Not Recovered/Not Resolved]
  - Alopecia [Not Recovered/Not Resolved]
  - Muscle spasms [Recovered/Resolved]
  - Fatigue [Unknown]
  - Dizziness [Unknown]
  - Pyrexia [Recovered/Resolved]

NARRATIVE: CASE EVENT DATE: 20190208
